FAERS Safety Report 11541275 (Version 3)
Quarter: 2015Q4

REPORT INFORMATION
  Report Type: Report from Study
  Country: BE (occurrence: BE)
  Receive Date: 20150923
  Receipt Date: 20151029
  Transmission Date: 20160304
  Serious: Yes (Hospitalization, Other)
  Sender: FDA-Public Use
  Company Number: BE-ABBVIE-15P-013-1446497-00

PATIENT
  Sex: Male

DRUGS (9)
  1. DUODOPA [Suspect]
     Active Substance: CARBIDOPA\LEVODOPA
     Indication: PARKINSON^S DISEASE
     Dosage: AM=5ML; CD=3.3ML/HR DURING 16HRS; ED=1ML
     Route: 050
     Dates: start: 20150727, end: 20150805
  2. DUODOPA [Suspect]
     Active Substance: CARBIDOPA\LEVODOPA
     Dosage: AM = 4 ML, CD = 3.2 ML/H DURING 16H, ED = 11.5 ML
     Route: 050
     Dates: start: 20150909
  3. DUODOPA [Suspect]
     Active Substance: CARBIDOPA\LEVODOPA
     Dosage: AM=5ML; CD=3.3ML/HR DURING 16HRS; ED=1.5ML
     Route: 050
     Dates: start: 20150822, end: 20150829
  4. STALEVO [Concomitant]
     Active Substance: CARBIDOPA\ENTACAPONE\LEVODOPA
     Indication: PRODUCT USED FOR UNKNOWN INDICATION
     Dosage: FORM STRENGTH: 50MG/12.5MG/200MG. 8 TIMES/DAY IF NEEDED
  5. CYMBALTA [Concomitant]
     Active Substance: DULOXETINE HYDROCHLORIDE
     Indication: PRODUCT USED FOR UNKNOWN INDICATION
  6. VESICARE [Concomitant]
     Active Substance: SOLIFENACIN SUCCINATE
     Indication: PRODUCT USED FOR UNKNOWN INDICATION
  7. DUODOPA [Suspect]
     Active Substance: CARBIDOPA\LEVODOPA
     Dosage: AM=5ML; CD=3.4ML/HR DURING 16HRS; ED=1.5ML
     Route: 050
     Dates: start: 20150805, end: 20150822
  8. DUODOPA [Suspect]
     Active Substance: CARBIDOPA\LEVODOPA
     Dosage: AM = 5 ML, CD = 3.2 ML/H DURING 16H, ED = 1.5 ML
     Route: 050
     Dates: start: 20150829, end: 20150909
  9. BETAHISTINE [Concomitant]
     Active Substance: BETAHISTINE
     Indication: PRODUCT USED FOR UNKNOWN INDICATION

REACTIONS (10)
  - Orthostatic hypotension [Recovering/Resolving]
  - Dizziness [Not Recovered/Not Resolved]
  - Nausea [Unknown]
  - Fall [Unknown]
  - Vertigo [Unknown]
  - Balance disorder [Not Recovered/Not Resolved]
  - Nausea [Recovering/Resolving]
  - Syncope [Unknown]
  - Unevaluable event [Unknown]
  - Dyskinesia [Recovered/Resolved]
